FAERS Safety Report 13617334 (Version 1)
Quarter: 2017Q2

REPORT INFORMATION
  Report Type: Spontaneous
  Country: US (occurrence: US)
  Receive Date: 20170606
  Receipt Date: 20170606
  Transmission Date: 20170830
  Serious: Yes (Other)
  Sender: FDA-Public Use
  Company Number: US-SA-2016SA220293

PATIENT
  Sex: Female

DRUGS (2)
  1. LANTUS [Suspect]
     Active Substance: INSULIN GLARGINE
     Indication: DIABETES MELLITUS
     Dosage: DOSE:44 UNIT(S)
     Route: 065
     Dates: end: 2016
  2. LANTUS [Suspect]
     Active Substance: INSULIN GLARGINE
     Indication: DIABETES MELLITUS
     Dosage: DOSE:10 UNIT(S)
     Route: 065
     Dates: start: 2015

REACTIONS (7)
  - Swelling [Unknown]
  - Headache [Unknown]
  - Ear pain [Recovered/Resolved]
  - Pain in extremity [Unknown]
  - Hypersensitivity [Unknown]
  - Throat tightness [Unknown]
  - Pulmonary congestion [Unknown]
